FAERS Safety Report 8453805-4 (Version None)
Quarter: 2012Q2

REPORT INFORMATION
  Report Type: 
  Country: None (occurrence: None)
  Receive Date: 20120620
  Receipt Date: 20120608
  Transmission Date: 20120825
  Serious: No
  Sender: FDA-Public Use
  Company Number: US-ASTRAZENECA-2012SE38795

PATIENT
  Age: 31 Year
  Sex: Female

DRUGS (15)
  1. SEROQUEL XR [Suspect]
     Dosage: 1 TABLET AT NOON
     Route: 048
  2. SEROQUEL XR [Suspect]
     Indication: BIPOLAR DISORDER
     Route: 048
  3. SEROQUEL XR [Suspect]
     Dosage: 1 TABLET AT NOON
     Route: 048
  4. SEROQUEL XR [Suspect]
     Route: 048
  5. SEROQUEL XR [Suspect]
     Indication: ANXIETY
     Route: 048
  6. SEROQUEL XR [Suspect]
     Route: 048
  7. SEROQUEL XR [Suspect]
     Route: 048
  8. SEROQUEL XR [Suspect]
     Route: 048
  9. SEROQUEL XR [Suspect]
     Route: 048
  10. SEROQUEL XR [Suspect]
     Dosage: ONE 200 MG TABLET AT NOON, ONE 400 MG TABLET AT 8 PM
     Route: 048
  11. SEROQUEL XR [Suspect]
     Dosage: ONE 200 MG TABLET AT NOON, ONE 400 MG TABLET AT 8 PM
     Route: 048
  12. SEROQUEL XR [Suspect]
     Dosage: 1 TABLET AT NOON
     Route: 048
  13. SEROQUEL XR [Suspect]
     Indication: MOOD SWINGS
     Route: 048
  14. SEROQUEL XR [Suspect]
     Route: 048
  15. SEROQUEL XR [Suspect]
     Dosage: ONE 200 MG TABLET AT NOON, ONE 400 MG TABLET AT 8 PM
     Route: 048

REACTIONS (4)
  - CIRCUMSTANCE OR INFORMATION CAPABLE OF LEADING TO MEDICATION ERROR [None]
  - INSOMNIA [None]
  - CONFUSIONAL STATE [None]
  - SOMNOLENCE [None]
